FAERS Safety Report 7379002 (Version 3)
Quarter: 2012Q4

REPORT INFORMATION
  Report Type: 
  Country: AU (occurrence: AU)
  Receive Date: 20100506
  Receipt Date: 20120921
  Transmission Date: 20130627
  Serious: Yes (Hospitalization)
  Sender: FDA-Public Use
  Company Number: PHHY2010AU25553

PATIENT
  Sex: Female

DRUGS (5)
  1. CLOZARIL [Suspect]
     Dosage: 500 mg, UNK
     Dates: start: 20070208, end: 20100419
  2. CLOZARIL [Suspect]
     Dosage: 500 mg, UNK
     Dates: start: 20070220
  3. CLOZARIL [Suspect]
     Dosage: 50 mg,
     Dates: start: 20070220
  4. CLOZARIL [Suspect]
     Dosage: 600 mg, UNK
     Dates: start: 20070220
  5. CLOZARIL [Suspect]
     Dosage: 450 mg, UNK
     Dates: start: 20070220

REACTIONS (3)
  - Mental disorder [Unknown]
  - Schizophrenia [Unknown]
  - Treatment noncompliance [None]
